FAERS Safety Report 20171974 (Version 1)
Quarter: 2021Q4

REPORT INFORMATION
  Report Type: Spontaneous
  Country: CA (occurrence: CA)
  Receive Date: 20211210
  Receipt Date: 20211210
  Transmission Date: 20220303
  Serious: Yes (Other)
  Sender: FDA-Public Use
  Company Number: CA-PFIZER INC-202101731270

PATIENT
  Age: 57 Year
  Sex: Female

DRUGS (3)
  1. METHOTREXATE SODIUM [Suspect]
     Active Substance: METHOTREXATE SODIUM
     Dosage: UNK
     Dates: end: 2019
  2. NAPROXEN [Concomitant]
     Active Substance: NAPROXEN
     Dosage: 500 MG, 2X/DAY
  3. PLAQUENIL [Concomitant]
     Active Substance: HYDROXYCHLOROQUINE SULFATE
     Dosage: 400 MG, 2X/DAY

REACTIONS (2)
  - Hepatic cirrhosis [Unknown]
  - Non-alcoholic steatohepatitis [Unknown]
